FAERS Safety Report 6718510-0 (Version None)
Quarter: 2010Q2

REPORT INFORMATION
  Report Type: 
  Country: None (occurrence: None)
  Receive Date: 20100510
  Receipt Date: 20100502
  Transmission Date: 20101027
  Serious: Yes (Other)
  Sender: FDA-Public Use
  Company Number: US-B.I. PHARMACEUTICALS,INC./RIDGEFIELD-2010-BP-05058BP

PATIENT
  Age: 61 Year
  Sex: Female

DRUGS (9)
  1. DULCOLAX [Suspect]
     Indication: PREOPERATIVE CARE
  2. DULCOLAX [Suspect]
     Dates: start: 20100501
  3. METFORMIN HYDROCHLORIDE [Concomitant]
     Indication: DIABETES MELLITUS
  4. GLIPIZIDE [Concomitant]
     Indication: DIABETES MELLITUS
  5. LISINOPRIL [Concomitant]
     Indication: HYPERTENSION
  6. SIMVASTATIN [Concomitant]
  7. SYNTHROID [Concomitant]
     Indication: HYPOTHYROIDISM
  8. AMBIEN CR [Concomitant]
  9. PREMARIN [Concomitant]
     Dates: end: 20100101

REACTIONS (2)
  - ASTHMA [None]
  - CARCINOID TUMOUR OF THE STOMACH [None]
